FAERS Safety Report 20240068 (Version 1)
Quarter: 2021Q4

REPORT INFORMATION
  Report Type: Spontaneous
  Country: CZ (occurrence: CZ)
  Receive Date: 20211228
  Receipt Date: 20211228
  Transmission Date: 20220303
  Serious: Yes (Other)
  Sender: FDA-Public Use
  Company Number: CZ-HBP-2021CZ023530

PATIENT
  Sex: Female

DRUGS (10)
  1. SUMATRIPTAN [Suspect]
     Active Substance: SUMATRIPTAN
     Indication: Migraine
     Dosage: UNK, (UNK, UNKNOWN)
     Route: 065
     Dates: start: 201809
  2. NIMESULIDE [Suspect]
     Active Substance: NIMESULIDE
     Indication: Migraine
     Dosage: UNK, (UNK UNK, UNKNOWN)
     Route: 065
  3. CITALOPRAM [Concomitant]
     Active Substance: CITALOPRAM HYDROBROMIDE
     Indication: Depression
     Dosage: 20 MILLIGRAM, QD, (UNK, UNKNOWN)
     Route: 065
     Dates: start: 201809
  4. INDOMETHACIN [Concomitant]
     Active Substance: INDOMETHACIN
     Dosage: UNK, (UNK, UNKNOWN)
     Route: 065
     Dates: start: 201907
  5. VALPROATE SODIUM [Concomitant]
     Active Substance: VALPROATE SODIUM
     Dosage: 450 MILLIGRAM, (450 MILLIGRAM, UNKNOWN)
     Route: 065
     Dates: start: 201905
  6. VALPROATE SODIUM [Concomitant]
     Active Substance: VALPROATE SODIUM
     Dosage: 500 MILLIGRAM, QD
     Route: 065
     Dates: start: 201907
  7. ERGOTAMINE [Concomitant]
     Active Substance: CAFFEINE\ERGOTAMINE\ERGOTAMINE TARTRATE
     Indication: Migraine
     Dosage: UNK, (UNK, UNKNOWN)
     Route: 065
     Dates: start: 201809
  8. DEXAMETHASONE [Concomitant]
     Active Substance: DEXAMETHASONE
     Indication: Migraine
     Dosage: UNK, (UNK, UNKNOWN)
     Route: 065
     Dates: start: 201809
  9. TOPIRAMATE [Concomitant]
     Active Substance: TOPIRAMATE
     Indication: Myotonic dystrophy
     Dosage: 50 MILLIGRAM, (TITRATED TO THE DOSE OF 2X50MG)
     Route: 065
     Dates: start: 2007, end: 201905
  10. DIAZEPAM [Concomitant]
     Active Substance: DIAZEPAM
     Indication: Migraine
     Dosage: UNK, (UNK, UNKNOWN)
     Route: 065
     Dates: start: 201809

REACTIONS (2)
  - Drug abuse [Not Recovered/Not Resolved]
  - Medication overuse headache [Not Recovered/Not Resolved]
